FAERS Safety Report 7187229-7 (Version None)
Quarter: 2010Q4

REPORT INFORMATION
  Report Type: 
  Country: None (occurrence: None)
  Receive Date: 20101222
  Receipt Date: 20101210
  Transmission Date: 20110411
  Serious: Yes (Hospitalization)
  Sender: FDA-Public Use
  Company Number: US-ELI_LILLY_AND_COMPANY-US201012003334

PATIENT
  Sex: Female

DRUGS (14)
  1. FORTEO [Suspect]
     Indication: OSTEOPOROSIS
     Dosage: 20 UG, DAILY (1/D)
     Route: 065
     Dates: start: 20101202, end: 20101203
  2. FUROSEMIDE [Concomitant]
     Dosage: UNK, UNKNOWN
     Route: 065
  3. METOPROLOL [Concomitant]
     Dosage: UNK, UNKNOWN
     Route: 065
  4. CALCIUM [Concomitant]
     Dosage: UNK, UNKNOWN
     Route: 065
  5. ASCORBIC ACID [Concomitant]
     Dosage: UNK, UNKNOWN
     Route: 065
  6. MULTI-VITAMINS [Concomitant]
     Dosage: UNK, UNKNOWN
     Route: 065
  7. ADVAIR [Concomitant]
     Dosage: UNK, UNKNOWN
     Route: 065
  8. ARICEPT [Concomitant]
     Dosage: UNK, UNKNOWN
     Route: 065
  9. WARFARIN [Concomitant]
     Dosage: UNK, UNKNOWN
     Route: 065
  10. LOVAZA [Concomitant]
     Dosage: UNK, UNKNOWN
     Route: 065
  11. AUGMENTIN '125' [Concomitant]
     Dosage: UNK, UNKNOWN
     Route: 065
  12. PREDNISONE [Concomitant]
     Dosage: UNK, UNKNOWN
     Route: 065
  13. TYLENOL (CAPLET) [Concomitant]
     Dosage: UNK, UNKNOWN
     Route: 065
  14. DEHYDROEPIANDROSTERONE [Concomitant]
     Dosage: UNK, UNKNOWN
     Route: 065

REACTIONS (1)
  - RESPIRATORY DISORDER [None]
